FAERS Safety Report 17426223 (Version 2)
Quarter: 2020Q1

REPORT INFORMATION
  Report Type: Report from Study
  Country: ES (occurrence: ES)
  Receive Date: 20200218
  Receipt Date: 20200228
  Transmission Date: 20200409
  Serious: Yes (Hospitalization)
  Sender: FDA-Public Use
  Company Number: ES-ACCORD-172985

PATIENT
  Age: 81 Year
  Sex: Male

DRUGS (10)
  1. SINTROM [Interacting]
     Active Substance: ACENOCOUMAROL
     Indication: ATRIAL FIBRILLATION
     Dosage: STRENGTH-4 MG TABLETS, 20 TABLETS
     Route: 048
     Dates: start: 201810, end: 20190825
  2. ATORVASTATIN/ATORVASTATIN CALCIUM [Interacting]
     Active Substance: ATORVASTATIN CALCIUM
     Indication: DYSLIPIDAEMIA
     Route: 048
     Dates: start: 20140410
  3. FUROSEMIDE. [Concomitant]
     Active Substance: FUROSEMIDE
     Indication: CHRONIC KIDNEY DISEASE
     Route: 048
     Dates: start: 201405, end: 20190825
  4. ATORVASTATIN/ATORVASTATIN CALCIUM [Suspect]
     Active Substance: ATORVASTATIN CALCIUM
     Indication: DYSLIPIDAEMIA
     Route: 048
     Dates: start: 201110, end: 20190825
  5. ENALAPRIL [Concomitant]
     Active Substance: ENALAPRIL
     Indication: HYPERTENSION
     Route: 048
     Dates: start: 20190129
  6. BOREA [Concomitant]
     Active Substance: MEGESTROL ACETATE
     Indication: CHRONIC KIDNEY DISEASE
     Dosage: STRENGTH-160 MG TABLETS, 30 TABLETS
     Route: 048
     Dates: start: 20190725, end: 20190825
  7. OMEPRAZOLE. [Interacting]
     Active Substance: OMEPRAZOLE
     Indication: PROPHYLAXIS
     Route: 048
     Dates: start: 20131003
  8. ADIRO [Interacting]
     Active Substance: ASPIRIN
     Dosage: STRENGTH-300 MG,30 TABLETS
     Route: 048
     Dates: start: 20140410
  9. HYDROCHLOROTHIAZIDE/LISINOPRIL [Concomitant]
     Active Substance: HYDROCHLOROTHIAZIDE\LISINOPRIL
     Indication: HYPERTENSION
  10. SPIRIVA [Concomitant]
     Active Substance: TIOTROPIUM BROMIDE MONOHYDRATE
     Indication: EMPHYSEMA
     Dosage: STRENGTH-18 MICROGRAMS  1 INHALER + 30 CAPSULES
     Route: 055
     Dates: end: 20190825

REACTIONS (2)
  - Lower gastrointestinal haemorrhage [Recovered/Resolved]
  - Drug interaction [Unknown]

NARRATIVE: CASE EVENT DATE: 20190823
